FAERS Safety Report 13288263 (Version 1)
Quarter: 2017Q1

REPORT INFORMATION
  Report Type: Spontaneous
  Country: US (occurrence: US)
  Receive Date: 20170302
  Receipt Date: 20170302
  Transmission Date: 20170428
  Serious: Yes (Other)
  Sender: FDA-Public Use
  Company Number: US-GLENMARK PHARMACEUTICALS-2017GMK026558

PATIENT
  Age: 46 Year
  Sex: Female

DRUGS (2)
  1. TRIAMCINOLONE ACETONIDE. [Suspect]
     Active Substance: TRIAMCINOLONE ACETONIDE
     Indication: PAIN
     Dosage: 2 ML 40 MG/ML TRIAMCINOLONE (80 MG), EUS-GUIDED CPBS AT 4-MONTH INTERVALS
     Route: 065
  2. BUPIVACAINE. [Concomitant]
     Active Substance: BUPIVACAINE
     Indication: PAIN
     Dosage: 20 ML, EUS-GUIDED CPBS AT 4-MONTH INTERVALS
     Route: 065

REACTIONS (1)
  - Psychotic disorder [Recovered/Resolved]
